FAERS Safety Report 9475300 (Version 1)
Quarter: 2013Q3

REPORT INFORMATION
  Report Type: Spontaneous
  Country: FR (occurrence: FR)
  Receive Date: 20130826
  Receipt Date: 20130826
  Transmission Date: 20140515
  Serious: Yes (Hospitalization)
  Sender: FDA-Public Use
  Company Number: FR-ROCHE-1265511

PATIENT
  Age: 86 Year
  Sex: Male

DRUGS (1)
  1. MABTHERA [Suspect]
     Indication: BLOOD DISORDER
     Route: 042

REACTIONS (1)
  - Ejection fraction decreased [Not Recovered/Not Resolved]
